FAERS Safety Report 11308767 (Version 3)
Quarter: 2015Q4

REPORT INFORMATION
  Report Type: Report from Study
  Country: JP (occurrence: JP)
  Receive Date: 20150724
  Receipt Date: 20151111
  Transmission Date: 20160304
  Serious: No
  Sender: FDA-Public Use
  Company Number: JP-ASTELLAS-2015JP014789AA

PATIENT
  Age: 79 Year
  Sex: Male
  Weight: 56 kg

DRUGS (3)
  1. ENZALUTAMIDE [Suspect]
     Active Substance: ENZALUTAMIDE
     Route: 048
     Dates: start: 20150702, end: 20150709
  2. DENOTAS [Concomitant]
     Active Substance: CALCIUM CARBONATE\CHOLECALCIFEROL\MAGNESIUM CARBONATE
     Indication: OSTEOPOROSIS
     Route: 048
     Dates: start: 20150611
  3. ENZALUTAMIDE [Suspect]
     Active Substance: ENZALUTAMIDE
     Indication: PROSTATE CANCER
     Route: 048
     Dates: start: 20150605, end: 20150701

REACTIONS (2)
  - Intentional product use issue [Unknown]
  - Drug eruption [Recovered/Resolved]

NARRATIVE: CASE EVENT DATE: 20150605
